FAERS Safety Report 4928679-6 (Version None)
Quarter: 2006Q1

REPORT INFORMATION
  Report Type: 
  Country: None (occurrence: None)
  Receive Date: 20060301
  Receipt Date: 20060223
  Transmission Date: 20060701
  Serious: Yes (Death)
  Sender: FDA-Public Use
  Company Number: US-JNJFOC-20060205494

PATIENT
  Sex: Female

DRUGS (24)
  1. INFLIXIMAB [Suspect]
     Indication: RHEUMATOID ARTHRITIS
     Route: 042
  2. EFFEXOR [Concomitant]
  3. AMITRIPTYLINE HCL [Concomitant]
  4. CELEBREX [Concomitant]
  5. ASPIRIN [Concomitant]
  6. TOPROL-XL [Concomitant]
  7. ZOCOR [Concomitant]
  8. ACCUPRIL [Concomitant]
  9. FOLATE [Concomitant]
  10. SYNTHROID [Concomitant]
  11. PROTONIX [Concomitant]
  12. ACTONEL [Concomitant]
  13. NIFEDIPINE [Concomitant]
  14. METHOTREXATE [Concomitant]
  15. FUROSEMIDE [Concomitant]
  16. QUININE SULFATE [Concomitant]
  17. MULTI-VITAMIN [Concomitant]
  18. MULTI-VITAMIN [Concomitant]
  19. MULTI-VITAMIN [Concomitant]
  20. MULTI-VITAMIN [Concomitant]
  21. MULTI-VITAMIN [Concomitant]
  22. MULTI-VITAMIN [Concomitant]
  23. MULTI-VITAMIN [Concomitant]
  24. MULTI-VITAMIN [Concomitant]

REACTIONS (1)
  - CORONARY ARTERY DISEASE [None]
